FAERS Safety Report 9773865 (Version 2)
Quarter: 2014Q1

REPORT INFORMATION
  Report Type: Report from Study
  Country: FR (occurrence: FR)
  Receive Date: 20131220
  Receipt Date: 20140130
  Transmission Date: 20141002
  Serious: Yes (Hospitalization)
  Sender: FDA-Public Use
  Company Number: FR-ROCHE-1318487

PATIENT
  Sex: Male

DRUGS (21)
  1. RITUXIMAB [Suspect]
     Indication: RHEUMATOID ARTHRITIS
     Route: 042
     Dates: start: 20070220, end: 20070823
  2. RITUXIMAB [Suspect]
     Route: 042
     Dates: start: 20110901
  3. RITUXIMAB [Suspect]
     Route: 042
     Dates: start: 20100623
  4. RITUXIMAB [Suspect]
     Route: 042
     Dates: start: 20091214
  5. RITUXIMAB [Suspect]
     Route: 042
     Dates: start: 20090625
  6. RITUXIMAB [Suspect]
     Route: 042
     Dates: start: 20090611
  7. RITUXIMAB [Suspect]
     Route: 042
     Dates: start: 20080424
  8. RITUXIMAB [Suspect]
     Route: 042
     Dates: start: 20070306
  9. RITUXIMAB [Suspect]
     Route: 042
     Dates: start: 20120503
  10. CORTANCYL [Concomitant]
     Dosage: 5 MG/D.
     Route: 065
     Dates: start: 20070306
  11. CORTANCYL [Concomitant]
     Route: 065
     Dates: start: 20090625
  12. CORTANCYL [Concomitant]
     Route: 065
     Dates: start: 20091214
  13. CORTANCYL [Concomitant]
     Dosage: 4 MG/D
     Route: 065
     Dates: start: 20100623
  14. CORTANCYL [Concomitant]
     Dosage: 3 MG/D
     Route: 065
     Dates: start: 20110901
  15. CORTANCYL [Concomitant]
     Route: 065
     Dates: start: 20120503
  16. METHOTREXATE [Concomitant]
     Indication: RHEUMATOID ARTHRITIS
     Route: 065
     Dates: start: 20070306
  17. METHOTREXATE [Concomitant]
     Route: 065
     Dates: start: 20090625
  18. METHOTREXATE [Concomitant]
     Route: 065
     Dates: start: 20091214
  19. METHOTREXATE [Concomitant]
     Route: 065
     Dates: start: 20100623
  20. METHOTREXATE [Concomitant]
     Route: 065
     Dates: start: 20110901
  21. METHOTREXATE [Concomitant]
     Route: 065
     Dates: start: 20120503

REACTIONS (12)
  - Joint prosthesis user [Recovered/Resolved]
  - Rheumatoid arthritis [Unknown]
  - Hepatocellular injury [Recovered/Resolved]
  - Blood lactate dehydrogenase increased [Recovered/Resolved]
  - Fall [Unknown]
  - Paraesthesia [Not Recovered/Not Resolved]
  - Neuralgia [Not Recovered/Not Resolved]
  - Oedema peripheral [Not Recovered/Not Resolved]
  - Scar pain [Not Recovered/Not Resolved]
  - Epicondylitis [Recovered/Resolved]
  - Peripheral pulse decreased [Not Recovered/Not Resolved]
  - Drug ineffective [Unknown]
